FAERS Safety Report 8903706 (Version 1)
Quarter: 2012Q4

REPORT INFORMATION
  Report Type: 
  Country: CH (occurrence: CH)
  Receive Date: 20121113
  Receipt Date: 20121113
  Transmission Date: 20130627
  Serious: Yes (Hospitalization, Other)
  Sender: FDA-Public Use
  Company Number: CH-009507513-1211CHE004216

PATIENT
  Age: 47 Year
  Sex: Female

DRUGS (3)
  1. REMERON [Suspect]
     Dosage: max 60DF at once
     Route: 048
     Dates: start: 20120612, end: 20120612
  2. LORAZEPAM [Suspect]
     Dosage: max 20DF at once
     Route: 048
     Dates: start: 20120612, end: 20120612
  3. ALCOHOL [Suspect]
     Dosage: UNK
     Route: 048
     Dates: start: 20120612, end: 20120612

REACTIONS (5)
  - Suicide attempt [Recovered/Resolved]
  - Coma [Recovered/Resolved]
  - Blood pressure systolic decreased [Recovered/Resolved]
  - Vomiting [Recovered/Resolved]
  - Intentional overdose [Unknown]
